FAERS Safety Report 25087871 (Version 1)
Quarter: 2025Q1

REPORT INFORMATION
  Report Type: Spontaneous
  Country: GB (occurrence: GB)
  Receive Date: 20250318
  Receipt Date: 20250318
  Transmission Date: 20250408
  Serious: Yes (Other)
  Sender: Haleon PLC
  Company Number: GB-MHRA-MED-202503082140449350-YGVZB

PATIENT
  Age: 43 Year
  Sex: Female
  Weight: 73 kg

DRUGS (1)
  1. FLUTICASONE PROPIONATE [Suspect]
     Active Substance: FLUTICASONE PROPIONATE
     Indication: Eustachian tube disorder
     Dosage: 1 SPRAY PER NOSTRIL TWICE DAILY
     Dates: start: 20250301, end: 20250304

REACTIONS (1)
  - Tinnitus [Not Recovered/Not Resolved]

NARRATIVE: CASE EVENT DATE: 20250308
